FAERS Safety Report 21526398 (Version 2)
Quarter: 2024Q4

REPORT INFORMATION
  Report Type: Spontaneous
  Country: US (occurrence: US)
  Receive Date: 20221031
  Receipt Date: 20241106
  Transmission Date: 20250114
  Serious: No
  Sender: UCB
  Company Number: US-UCBSA-2022016532

PATIENT
  Sex: Female

DRUGS (1)
  1. VIMPAT [Suspect]
     Active Substance: LACOSAMIDE
     Indication: Seizure

REACTIONS (5)
  - Alopecia [Unknown]
  - Urinary tract infection [Unknown]
  - Hospitalisation [Unknown]
  - Epilepsy [Unknown]
  - Illness [Unknown]
